FAERS Safety Report 16267234 (Version 5)
Quarter: 2019Q3

REPORT INFORMATION
  Report Type: Spontaneous
  Country: FR (occurrence: FR)
  Receive Date: 20190502
  Receipt Date: 20190926
  Transmission Date: 20191004
  Serious: Yes (Hospitalization, Other)
  Sender: FDA-Public Use
  Company Number: PHHY2019FR098498

PATIENT
  Age: 70 Year
  Sex: Female

DRUGS (25)
  1. CETORNAN [Concomitant]
     Indication: PRODUCT USED FOR UNKNOWN INDICATION
     Dosage: 2 DF, QD
     Route: 065
  2. LOPERAMIDE [Concomitant]
     Active Substance: LOPERAMIDE
     Indication: PRODUCT USED FOR UNKNOWN INDICATION
     Dosage: UNK
     Route: 065
  3. LOVENOX [Concomitant]
     Active Substance: ENOXAPARIN SODIUM
     Indication: PRODUCT USED FOR UNKNOWN INDICATION
     Dosage: 4000 U, UNK
     Route: 065
  4. OXETINE [Concomitant]
     Indication: PRODUCT USED FOR UNKNOWN INDICATION
     Dosage: 1 DF, UNK
     Route: 065
  5. LASILIX [Concomitant]
     Active Substance: FUROSEMIDE
     Indication: HYPERTENSION
  6. PERINDOPRIL [Concomitant]
     Active Substance: PERINDOPRIL
     Indication: PRODUCT USED FOR UNKNOWN INDICATION
     Dosage: 8 MG, UNK (MORNING)
     Route: 065
  7. ALDACTONE [Concomitant]
     Active Substance: SPIRONOLACTONE
     Indication: PRODUCT USED FOR UNKNOWN INDICATION
     Dosage: UNK
     Route: 065
  8. FEMARA [Suspect]
     Active Substance: LETROZOLE
     Indication: BREAST CANCER
     Dosage: 2.5 MG, QD (1 DF) FOR 6 MONTHS
     Route: 065
     Dates: start: 201303
  9. FEMARA [Suspect]
     Active Substance: LETROZOLE
     Dosage: 2.5 MG, QD (1 DF)
     Route: 065
     Dates: start: 20131014, end: 201406
  10. DIFFU K [Concomitant]
     Active Substance: POTASSIUM CHLORIDE
     Indication: TACHYCARDIA
     Dosage: UNK
     Route: 065
     Dates: start: 20140520
  11. ANTICOAGULANTS [Concomitant]
     Active Substance: UNSPECIFIED INGREDIENT
     Indication: PRODUCT USED FOR UNKNOWN INDICATION
     Dosage: UNK
     Route: 065
  12. ESIDREX [Concomitant]
     Active Substance: HYDROCHLOROTHIAZIDE
     Indication: HYPERTENSION
     Dosage: UNK
     Route: 065
     Dates: start: 1995
  13. INEXIUM [Concomitant]
     Active Substance: ESOMEPRAZOLE
     Indication: PRODUCT USED FOR UNKNOWN INDICATION
     Dosage: 40 MG, UNK
     Route: 065
  14. BISOCE [Concomitant]
     Active Substance: BISOPROLOL
     Dosage: 1 DF, UNK (2.5 MG) AT NOON
     Route: 065
  15. INDOPRIL [Concomitant]
     Indication: PRODUCT USED FOR UNKNOWN INDICATION
     Dosage: UNK
     Route: 065
  16. COUMADIN [Concomitant]
     Active Substance: WARFARIN SODIUM
     Indication: PRODUCT USED FOR UNKNOWN INDICATION
     Dosage: 3 MG, UNK (TO ADAPT ACCORDING TO INR (INTERNATIONAL NORMALIZED RATIO)
     Route: 065
  17. DIFFU K [Concomitant]
     Active Substance: POTASSIUM CHLORIDE
     Indication: HYPERTENSION
  18. INEXIUM [Concomitant]
     Active Substance: ESOMEPRAZOLE
     Dosage: 1 DF, UNK (EVENING)
     Route: 065
  19. BISOCE [Concomitant]
     Active Substance: BISOPROLOL
     Indication: PRODUCT USED FOR UNKNOWN INDICATION
     Dosage: 1.25 MG, UNK
     Route: 065
  20. BISOPROLOL [Concomitant]
     Active Substance: BISOPROLOL
     Indication: PRODUCT USED FOR UNKNOWN INDICATION
     Dosage: 2.5 MG, QD
     Route: 065
  21. ATENOLOL. [Concomitant]
     Active Substance: ATENOLOL
     Indication: HYPERTENSION
     Dosage: UNK
     Route: 065
     Dates: start: 1995
  22. LASILIX [Concomitant]
     Active Substance: FUROSEMIDE
     Indication: TACHYCARDIA
     Dosage: 20 MG, QD (IN THE MORNING)
     Route: 065
     Dates: start: 20140520
  23. SONDALIS HP [Concomitant]
     Active Substance: AMINO ACIDS\DEXTROSE\ELECTROLYTES NOS\SOYBEAN OIL\VITAMINS
     Indication: PRODUCT USED FOR UNKNOWN INDICATION
     Dosage: 500 ML, BID
     Route: 065
  24. PERINDOPRIL [Concomitant]
     Active Substance: PERINDOPRIL
     Dosage: 4 MG, QD
     Route: 065
     Dates: start: 20180612
  25. FLUOXETINE [Concomitant]
     Active Substance: FLUOXETINE HYDROCHLORIDE
     Indication: PRODUCT USED FOR UNKNOWN INDICATION
     Dosage: 20 MG, QD
     Route: 065

REACTIONS (36)
  - Intracardiac thrombus [Unknown]
  - Acute pulmonary oedema [Unknown]
  - Paralysis [Unknown]
  - Disorientation [Unknown]
  - Dyspraxia [Unknown]
  - Constipation [Unknown]
  - Bundle branch block left [Unknown]
  - Cerebrovascular accident [Recovered/Resolved with Sequelae]
  - Cytotoxic cardiomyopathy [Unknown]
  - Hemiplegia [Unknown]
  - Skin abrasion [Unknown]
  - Paresis [Recovered/Resolved with Sequelae]
  - Visual acuity reduced [Unknown]
  - Language disorder [Recovering/Resolving]
  - Muscle spasticity [Unknown]
  - Stereotypy [Unknown]
  - Headache [Unknown]
  - Mutism [Unknown]
  - Anal incontinence [Unknown]
  - Speech disorder [Unknown]
  - Cerebral disorder [Unknown]
  - Complication associated with device [Unknown]
  - Reading disorder [Unknown]
  - Learning disorder [Unknown]
  - Ejection fraction decreased [Unknown]
  - Facial paralysis [Unknown]
  - Atrial fibrillation [Unknown]
  - Intracranial haematoma [Unknown]
  - Periarthritis [Unknown]
  - Aphasia [Unknown]
  - Memory impairment [Unknown]
  - Communication disorder [Unknown]
  - Attention deficit/hyperactivity disorder [Unknown]
  - Gait disturbance [Recovering/Resolving]
  - Movement disorder [Recovering/Resolving]
  - Alexia [Unknown]

NARRATIVE: CASE EVENT DATE: 20140525
